FAERS Safety Report 4492112-1 (Version None)
Quarter: 2004Q4

REPORT INFORMATION
  Report Type: 
  Country: None (occurrence: None)
  Receive Date: 20041101
  Receipt Date: 20041021
  Transmission Date: 20050328
  Serious: Yes (Other)
  Sender: FDA-Public Use
  Company Number: US-JNJFOC-20041007739

PATIENT
  Age: 14 Year
  Sex: Female
  Weight: 90.7194 kg

DRUGS (6)
  1. TYLENOL [Suspect]
     Indication: HEADACHE
     Dosage: 1000 MG, 1 IN 6 HOUR, ORAL
     Route: 048
     Dates: start: 20041018
  2. ALL OTHER THERAPEUTIC PRODUCTS [Suspect]
  3. DEPAKOTE (VALPROTATE SEMISODIUM) [Concomitant]
  4. LEXAPRO (ALL OTHR THERAPEUTIC PRODUCTS) [Concomitant]
  5. STRATTERA (ALL OTHER THERAPEUTIC PRODUCTS) [Concomitant]
  6. SEROQUEL [Concomitant]

REACTIONS (3)
  - CONSTIPATION [None]
  - FEELING ABNORMAL [None]
  - VOMITING [None]
